FAERS Safety Report 6219469-5 (Version None)
Quarter: 2009Q2

REPORT INFORMATION
  Report Type: 
  Country: None (occurrence: None)
  Receive Date: 20090609
  Receipt Date: 20090529
  Transmission Date: 20091009
  Serious: Yes (Other)
  Sender: FDA-Public Use
  Company Number: PHHY2009JP13491

PATIENT
  Sex: Male

DRUGS (9)
  1. ZOMETA [Suspect]
     Indication: METASTASES TO BONE
     Dosage: 4 MG, QMO
     Route: 042
     Dates: start: 20070510, end: 20090324
  2. PURSENNID [Concomitant]
     Dosage: 24 MG, UNK
     Route: 048
     Dates: start: 20081120
  3. DECADRON [Concomitant]
     Dosage: 1 MG, UNK
     Route: 048
     Dates: start: 20090106
  4. HYPEN [Concomitant]
     Dosage: 400 MG, UNK
     Route: 048
     Dates: start: 20090106
  5. ESTRACYT [Concomitant]
     Dosage: 2 DF, UNK
     Route: 048
     Dates: start: 20081120, end: 20090106
  6. ODYNE [Concomitant]
     Dosage: 250 MG, UNK
     Route: 048
     Dates: start: 20080703, end: 20081002
  7. CASODEX [Concomitant]
     Indication: PROSTATE CANCER
     Dosage: 80 MG/DAY
     Route: 048
     Dates: start: 20070412, end: 20071004
  8. PROSTAL [Concomitant]
     Indication: PROSTATE CANCER
     Dosage: 100MG/DAY
     Route: 048
     Dates: start: 20071101, end: 20080403
  9. HARNAL [Concomitant]
     Indication: BENIGN PROSTATIC HYPERPLASIA
     Dosage: 0.2 MG/DAY
     Route: 048
     Dates: start: 20080403

REACTIONS (4)
  - OSTEOMYELITIS [None]
  - PROSTATE CANCER [None]
  - PROSTATIC SPECIFIC ANTIGEN INCREASED [None]
  - TOOTH DISORDER [None]
